FAERS Safety Report 23356743 (Version 2)
Quarter: 2024Q1

REPORT INFORMATION
  Report Type: Spontaneous
  Country: BE (occurrence: None)
  Receive Date: 20240102
  Receipt Date: 20240109
  Transmission Date: 20240409
  Serious: Yes (Hospitalization, Other)
  Sender: FDA-Public Use
  Company Number: BE-Unichem Pharmaceuticals (USA) Inc-UCM202312-001597

PATIENT
  Age: 70 Year
  Sex: Male

DRUGS (7)
  1. CARBAMAZEPINE [Suspect]
     Active Substance: CARBAMAZEPINE
     Indication: Epilepsy
     Dosage: UNKNOWN
  2. TICAGRELOR [Suspect]
     Active Substance: TICAGRELOR
     Indication: Acute myocardial infarction
  3. TICAGRELOR [Suspect]
     Active Substance: TICAGRELOR
     Dosage: ON DISCHARGED
  4. ASPIRIN [Concomitant]
     Active Substance: ASPIRIN
     Indication: Acute myocardial infarction
     Dosage: ON DISCHARGED
  5. HEPARIN [Concomitant]
     Active Substance: HEPARIN SODIUM
     Indication: Acute myocardial infarction
     Dosage: UNKNOWN
  6. EPTIFIBATIDE [Concomitant]
     Active Substance: EPTIFIBATIDE
     Indication: Acute myocardial infarction
     Dosage: UNKNOWN
  7. PRASUGREL [Concomitant]
     Active Substance: PRASUGREL
     Indication: Circulatory collapse
     Dosage: LOADING DOSE OF 60 MG FOLLOWED BY DAILY MAINTENANCE DOSE OF 10 MG

REACTIONS (3)
  - Vascular stent thrombosis [Recovered/Resolved]
  - Drug interaction [Unknown]
  - Circulatory collapse [Recovered/Resolved]
